FAERS Safety Report 9739509 (Version 1)
Quarter: 2013Q4

REPORT INFORMATION
  Report Type: Spontaneous
  Country: CH (occurrence: CH)
  Receive Date: 20131209
  Receipt Date: 20131209
  Transmission Date: 20140711
  Serious: Yes (Other)
  Sender: FDA-Public Use
  Company Number: CH-TEVA-449271USA

PATIENT
  Age: 79 Year
  Sex: Male

DRUGS (2)
  1. BENDAMUSTINE [Suspect]
     Indication: NON-HODGKIN^S LYMPHOMA
     Dosage: UNKNOWN/D
     Route: 041
     Dates: start: 20130822, end: 20130827
  2. RITUXIMAB [Concomitant]
     Indication: NON-HODGKIN^S LYMPHOMA
     Dates: start: 20130822, end: 20130822

REACTIONS (4)
  - Urinary retention [Recovered/Resolved]
  - Pyrexia [Recovered/Resolved]
  - Chills [Recovered/Resolved]
  - Rash [Recovered/Resolved]
